FAERS Safety Report 15403234 (Version 1)
Quarter: 2018Q3

REPORT INFORMATION
  Report Type: Spontaneous
  Country: US (occurrence: US)
  Receive Date: 20180918
  Receipt Date: 20180918
  Transmission Date: 20181010
  Serious: Yes (Other)
  Sender: FDA-Public Use
  Company Number: None

PATIENT
  Age: 27 Year
  Sex: Male
  Weight: 76.5 kg

DRUGS (1)
  1. HUMIRA [Suspect]
     Active Substance: ADALIMUMAB
     Indication: PSORIASIS
     Dates: start: 20180201

REACTIONS (4)
  - Wisdom teeth removal [None]
  - Hypoaesthesia [None]
  - Pain in jaw [None]
  - Procedural haemorrhage [None]

NARRATIVE: CASE EVENT DATE: 20180906
